FAERS Safety Report 16237653 (Version 2)
Quarter: 2019Q2

REPORT INFORMATION
  Report Type: Spontaneous
  Country: JP (occurrence: JP)
  Receive Date: 20190425
  Receipt Date: 20190501
  Transmission Date: 20190711
  Serious: Yes (Hospitalization, Other)
  Sender: FDA-Public Use
  Company Number: JP-PFIZER INC-2019168511

PATIENT
  Age: 43 Year
  Sex: Male

DRUGS (2)
  1. PACLITAXEL. [Suspect]
     Active Substance: PACLITAXEL
     Indication: ANGIOSARCOMA
     Dosage: 80 MG/M2, WEEKLY
  2. PACLITAXEL. [Suspect]
     Active Substance: PACLITAXEL
     Dosage: 55 MG/M2, WEEKLY

REACTIONS (1)
  - Drug-induced liver injury [Recovering/Resolving]
